FAERS Safety Report 24841871 (Version 9)
Quarter: 2025Q4

REPORT INFORMATION
  Report Type: Spontaneous
  Country: JP (occurrence: JP)
  Receive Date: 20250114
  Receipt Date: 20251027
  Transmission Date: 20260118
  Serious: Yes (Hospitalization, Other)
  Sender: SANOFI AVENTIS
  Company Number: JP-SA-2025SA005825

PATIENT
  Age: 52 Year
  Sex: Male
  Weight: 80 kg

DRUGS (11)
  1. ALTUVIIIO [Suspect]
     Active Substance: EFANESOCTOCOG ALFA
     Indication: Factor VIII deficiency
     Dosage: 4000 IU/DAY
     Route: 042
     Dates: start: 20241219, end: 20241219
  2. ALTUVIIIO [Suspect]
     Active Substance: EFANESOCTOCOG ALFA
     Indication: Factor VIII deficiency
     Dosage: 40 IU/KG, QW
     Route: 042
     Dates: start: 20241024, end: 20241212
  3. ALTUVIIIO [Suspect]
     Active Substance: EFANESOCTOCOG ALFA
     Indication: Factor VIII inhibition
     Dosage: 3000 IU DURING HOSPITALIZATION
     Route: 042
     Dates: start: 20241225
  4. ELOCTATE [Suspect]
     Active Substance: EFMOROCTOCOG ALFA
     Indication: Factor VIII deficiency
     Dosage: 4000 IU, QW
     Route: 042
     Dates: start: 2018, end: 20241023
  5. TRANSAMIN [Concomitant]
     Active Substance: TRANEXAMIC ACID
     Indication: Haemorrhage prophylaxis
     Dosage: 750 MG/DAY
     Route: 065
     Dates: start: 20241212
  6. TRANSAMIN [Concomitant]
     Active Substance: TRANEXAMIC ACID
     Indication: Conjunctival haemorrhage
  7. TRANSAMIN [Concomitant]
     Active Substance: TRANEXAMIC ACID
     Indication: Gingival bleeding
  8. VALPROATE SODIUM [Concomitant]
     Active Substance: VALPROATE SODIUM
     Indication: Epilepsy
     Dosage: 400 MG/DAY
     Route: 065
  9. TOCOPHERYL NICOTINATE, D-.ALPHA. [Concomitant]
     Active Substance: TOCOPHERYL NICOTINATE, D-.ALPHA.
     Indication: Product used for unknown indication
     Dosage: 200 MG/DAY
     Route: 048
  10. GLUTAMINE\SODIUM GUALENATE [Concomitant]
     Active Substance: GLUTAMINE\SODIUM GUALENATE
     Indication: Product used for unknown indication
     Dosage: 1 G/DAY
     Route: 065
  11. HERBALS [Concomitant]
     Active Substance: HERBALS
     Indication: Irritability
     Dosage: 2.5 G
     Route: 065

REACTIONS (13)
  - Autoimmune haemolytic anaemia [Unknown]
  - Anaemia [Unknown]
  - Shock haemorrhagic [Unknown]
  - Factor VIII inhibition [Unknown]
  - Gingival bleeding [Recovered/Resolved]
  - Conjunctival haemorrhage [Recovered/Resolved]
  - Subcutaneous haematoma [Unknown]
  - Musculoskeletal pain [Unknown]
  - Haemorrhage [Recovered/Resolved]
  - Muscle haemorrhage [Recovered/Resolved]
  - Lung opacity [Unknown]
  - Factor VIII activity decreased [Unknown]
  - Haemorrhage [Unknown]

NARRATIVE: CASE EVENT DATE: 20241224
